FAERS Safety Report 9893803 (Version 1)
Quarter: 2014Q1

REPORT INFORMATION
  Report Type: Report from Study
  Country: BR (occurrence: BR)
  Receive Date: 20140213
  Receipt Date: 20140213
  Transmission Date: 20141002
  Serious: Yes (Other)
  Sender: FDA-Public Use
  Company Number: PHHY2014BR017480

PATIENT
  Sex: Female
  Weight: 67 kg

DRUGS (5)
  1. ACLASTA [Suspect]
     Indication: OSTEOPOROSIS
     Dosage: 5 MG, UNK
     Route: 042
     Dates: start: 2012
  2. DIOVAN [Concomitant]
     Indication: BLOOD PRESSURE ABNORMAL
     Dosage: 320 MG, UNK
  3. CALCITRAL D                        /00944201/ [Concomitant]
     Indication: BONE DISORDER
     Dosage: 600 MG, UNK
     Dates: start: 2013
  4. ASPIRINA PREVENT [Concomitant]
     Indication: BLOOD PRESSURE ABNORMAL
     Dosage: 1000 MG, UNK
  5. HEIMER [Concomitant]
     Indication: MEMORY IMPAIRMENT
     Dosage: UNK UKN, UNK

REACTIONS (4)
  - Diabetes mellitus [Recovering/Resolving]
  - Vitamin D deficiency [Recovering/Resolving]
  - Oesophageal disorder [Recovering/Resolving]
  - Gastrooesophageal reflux disease [Recovering/Resolving]
